FAERS Safety Report 7141141-8 (Version None)
Quarter: 2010Q4

REPORT INFORMATION
  Report Type: 
  Country: None (occurrence: None)
  Receive Date: 20101122
  Receipt Date: 20101108
  Transmission Date: 20110411
  Serious: Yes (Hospitalization)
  Sender: FDA-Public Use
  Company Number: DSU-2010-06142

PATIENT
  Age: 72 Year
  Sex: Male

DRUGS (5)
  1. OLMETEC HCT (HYDROCHLOROTHIAZIDE, OLMESARTAN MEDOXOMIL) (TABLET) (HYDR [Suspect]
     Indication: HYPERTENSION
     Dosage: 20/12.5 MG (QD), PER ORAL
     Route: 048
     Dates: start: 20071203
  2. LIPITOR [Suspect]
  3. ACETYLSALICYLIC ACID SRT [Concomitant]
  4. LOSARTAN (LOSARTAN) (50 MILLIGRAM,TABLET) (LOSARTAN) [Concomitant]
  5. LOVASTATIN (LOVASTATIN) (20 MILLIGRAM,TABLET) (LOVASTATIN) [Concomitant]

REACTIONS (2)
  - ACUTE MYOCARDIAL INFARCTION [None]
  - RESPIRATORY ARREST [None]
